FAERS Safety Report 8798753 (Version 1)
Quarter: 2012Q4

REPORT INFORMATION
  Report Type: Spontaneous
  Country: US (occurrence: None)
  Receive Date: 20120917
  Receipt Date: 20120917
  Transmission Date: 20130627
  Serious: Yes (Disabling)
  Sender: FDA-Public Use
  Company Number: None

PATIENT
  Age: 40 Year
  Sex: Female
  Weight: 83.92 kg

DRUGS (1)
  1. PROZAC [Suspect]
     Indication: DEPRESSION
     Route: 048
     Dates: start: 19900101, end: 19950301

REACTIONS (9)
  - Restlessness [None]
  - Hostility [None]
  - Anger [None]
  - Aggression [None]
  - Loss of employment [None]
  - Memory impairment [None]
  - Hallucination [None]
  - Feeling abnormal [None]
  - Abnormal behaviour [None]
